FAERS Safety Report 17676375 (Version 1)
Quarter: 2020Q2

REPORT INFORMATION
  Report Type: Spontaneous
  Country: GB (occurrence: GB)
  Receive Date: 20200416
  Receipt Date: 20200416
  Transmission Date: 20200714
  Serious: Yes (Other)
  Sender: FDA-Public Use
  Company Number: GB-AUROBINDO-AUR-APL-2020-018494

PATIENT
  Age: 32 Year
  Sex: Female

DRUGS (8)
  1. METRONIDAZOLE. [Suspect]
     Active Substance: METRONIDAZOLE
     Indication: CAESAREAN SECTION
     Dosage: 500 MILLIGRAM, ONCE A DAY
     Route: 042
     Dates: start: 20200324, end: 20200324
  2. TRANEXAMIC ACID. [Suspect]
     Active Substance: TRANEXAMIC ACID
     Indication: PERIPARTUM HAEMORRHAGE
     Dosage: 1 GRAM
     Route: 042
     Dates: start: 20200324, end: 20200324
  3. CARBETOCIN [Suspect]
     Active Substance: CARBETOCIN
     Indication: CAESAREAN SECTION
     Dosage: 100 MICROGRAM
     Route: 042
     Dates: start: 20200324, end: 20200324
  4. LIDOCAINE. [Suspect]
     Active Substance: LIDOCAINE
     Indication: CAESAREAN SECTION
     Dosage: 18 MILLILITER, (18ML OF 2%)
     Route: 008
     Dates: start: 20200324, end: 20200324
  5. CEFUROXIME. [Suspect]
     Active Substance: CEFUROXIME
     Indication: CAESAREAN SECTION
     Dosage: 1.5 GRAM
     Route: 042
     Dates: start: 20200324, end: 20200324
  6. ONDANSETRON [Suspect]
     Active Substance: ONDANSETRON
     Indication: NAUSEA
     Dosage: 4 MILLIGRAM
     Route: 042
     Dates: start: 20200324, end: 20200324
  7. DIAMORPHINE [Suspect]
     Active Substance: DIAMORPHINE
     Indication: PAIN
     Dosage: 3 MILLIGRAM
     Route: 008
     Dates: start: 20200324, end: 20200324
  8. GLYCERYL TRINITRATE [Suspect]
     Active Substance: NITROGLYCERIN
     Indication: TOCOLYSIS
     Dosage: 2 DOSAGE FORM, (PUFFS)
     Route: 060
     Dates: start: 20200324, end: 20200324

REACTIONS (1)
  - Anaphylactic reaction [Recovered/Resolved]

NARRATIVE: CASE EVENT DATE: 20200324
